FAERS Safety Report 23604630 (Version 2)
Quarter: 2024Q1

REPORT INFORMATION
  Report Type: Report from Study
  Country: RU (occurrence: RU)
  Receive Date: 20240307
  Receipt Date: 20240319
  Transmission Date: 20240409
  Serious: Yes (Other)
  Sender: FDA-Public Use
  Company Number: RU-002147023-NVSC2024RU048619

PATIENT
  Sex: Male
  Weight: 80 kg

DRUGS (5)
  1. DABRAFENIB [Suspect]
     Active Substance: DABRAFENIB
     Indication: Malignant melanoma
     Dosage: 150 MG (2X75 MG TABLETS), BID, STOP DATE: FIRST TWO MONTHS
     Route: 048
     Dates: start: 202106
  2. DABRAFENIB [Suspect]
     Active Substance: DABRAFENIB
     Indication: BRAF V600E mutation positive
  3. DABRAFENIB [Suspect]
     Active Substance: DABRAFENIB
     Indication: Breast cancer stage IV
  4. DABRAFENIB [Suspect]
     Active Substance: DABRAFENIB
     Indication: Adjuvant therapy
  5. TRAMETINIB [Suspect]
     Active Substance: TRAMETINIB
     Indication: Product used for unknown indication
     Dosage: 2 MG, QD
     Route: 048

REACTIONS (2)
  - Body temperature increased [Recovering/Resolving]
  - Transaminases increased [Recovering/Resolving]
